FAERS Safety Report 8164171-6 (Version None)
Quarter: 2012Q1

REPORT INFORMATION
  Report Type: 
  Country: None (occurrence: None)
  Receive Date: 20120224
  Receipt Date: 20120212
  Transmission Date: 20120608
  Serious: Yes (Hospitalization)
  Sender: FDA-Public Use
  Company Number: HU-ELI_LILLY_AND_COMPANY-HU201112005322

PATIENT
  Age: 50 Year
  Sex: Female

DRUGS (7)
  1. POTASSIUM CHLORIDE [Concomitant]
  2. PRENESSA [Concomitant]
     Indication: HYPERTENSION
  3. OLANZAPINE [Suspect]
     Indication: SCHIZOPHRENIA, PARANOID TYPE
     Dosage: 405 MG, MONTHLY (1/M)
     Route: 030
     Dates: start: 20100101
  4. ABILIFY [Concomitant]
  5. VALDOXAN [Concomitant]
  6. THEOSPIREX [Concomitant]
     Dosage: 375 MG, BID
  7. BRINALDIX [Concomitant]
     Indication: HYPERTENSION

REACTIONS (11)
  - DYSARTHRIA [None]
  - RESPIRATORY RATE DECREASED [None]
  - COGNITIVE DISORDER [None]
  - SOMNOLENCE [None]
  - DIZZINESS [None]
  - ASTHENIA [None]
  - HYPOTENSION [None]
  - DISTURBANCE IN ATTENTION [None]
  - DISORIENTATION [None]
  - HYPOTONIA [None]
  - URINARY INCONTINENCE [None]
